FAERS Safety Report 13323549 (Version 2)
Quarter: 2017Q2

REPORT INFORMATION
  Report Type: Spontaneous
  Country: US (occurrence: US)
  Receive Date: 20170310
  Receipt Date: 20170405
  Transmission Date: 20170830
  Serious: No
  Sender: FDA-Public Use
  Company Number: US-ELI_LILLY_AND_COMPANY-US201703001622

PATIENT
  Age: 68 Year
  Sex: Female

DRUGS (4)
  1. TRULICITY [Suspect]
     Active Substance: DULAGLUTIDE
     Dosage: 0.75 MG, WEEKLY (1/W)
     Route: 065
     Dates: start: 201609
  2. TRULICITY [Suspect]
     Active Substance: DULAGLUTIDE
     Indication: TYPE 2 DIABETES MELLITUS
     Dosage: 0.75 MG, WEEKLY (1/W)
     Route: 065
     Dates: start: 201609
  3. TRESIBA [Concomitant]
     Active Substance: INSULIN DEGLUDEC
     Dosage: 45 U, QD
  4. NOVOLOG [Concomitant]
     Active Substance: INSULIN ASPART
     Dosage: UNK, PRN

REACTIONS (3)
  - Underdose [Unknown]
  - Incorrect dose administered [Unknown]
  - Pharyngeal paraesthesia [Unknown]

NARRATIVE: CASE EVENT DATE: 20170228
